FAERS Safety Report 9347822 (Version 2)
Quarter: 2013Q3

REPORT INFORMATION
  Report Type: Spontaneous
  Country: US (occurrence: US)
  Receive Date: 20130614
  Receipt Date: 20130715
  Transmission Date: 20140515
  Serious: No
  Sender: FDA-Public Use
  Company Number: US-PFIZER INC-2013177735

PATIENT
  Sex: Female
  Weight: 90.7 kg

DRUGS (2)
  1. FLECTOR [Suspect]
     Indication: BACK PAIN
     Dosage: UNK, 3X/DAY
     Route: 062
  2. HYZAAR [Concomitant]
     Indication: HYPERTENSION
     Dosage: HYDROCHLOROTHIAZIDE 100MG/LOSARTAN 25MG, 1X/DAY

REACTIONS (2)
  - Blood cholesterol increased [Unknown]
  - Product adhesion issue [Unknown]
